FAERS Safety Report 15751010 (Version 1)
Quarter: 2018Q4

REPORT INFORMATION
  Report Type: Spontaneous
  Country: US (occurrence: US)
  Receive Date: 20181221
  Receipt Date: 20181221
  Transmission Date: 20190205
  Serious: No
  Sender: FDA-Public Use
  Company Number: US-THERAPEUTICSMD-2018TMD00271

PATIENT
  Age: 63 Year
  Sex: Female

DRUGS (2)
  1. IMVEXXY [Suspect]
     Active Substance: ESTRADIOL
     Dosage: 10 ?G, 1X/DAY
     Route: 067
     Dates: start: 2018
  2. UNSPECIFIED ESTROGEN/PROGESTERONE PATCH [Concomitant]
     Dosage: ^LOW DOSE^
     Route: 061

REACTIONS (4)
  - Product dose omission [Unknown]
  - Breast tenderness [Not Recovered/Not Resolved]
  - Vaginal discharge [Unknown]
  - Breast enlargement [Not Recovered/Not Resolved]

NARRATIVE: CASE EVENT DATE: 2018
